FAERS Safety Report 5248201-7 (Version None)
Quarter: 2007Q1

REPORT INFORMATION
  Report Type: 
  Country: None (occurrence: None)
  Receive Date: 20070227
  Receipt Date: 20060705
  Transmission Date: 20070707
  Serious: No
  Sender: FDA-Public Use
  Company Number: US-BRISTOL-MYERS SQUIBB COMPANY-13433222

PATIENT
  Age: 80 Year
  Sex: Male
  Weight: 79 kg

DRUGS (4)
  1. METFORMIN HCL [Suspect]
     Indication: DIABETES MELLITUS
     Dates: start: 20050701
  2. LEVOXYL [Concomitant]
  3. DIGOXIN [Concomitant]
  4. LISINOPRIL [Concomitant]

REACTIONS (1)
  - RASH [None]
